FAERS Safety Report 4560681-9 (Version None)
Quarter: 2005Q1

REPORT INFORMATION
  Report Type: 
  Country: None (occurrence: None)
  Receive Date: 20050121
  Receipt Date: 20050112
  Transmission Date: 20050727
  Serious: Yes (Other)
  Sender: FDA-Public Use
  Company Number: 2005-01-1099

PATIENT
  Age: 60 Year
  Sex: Female

DRUGS (1)
  1. GENTAMICIN [Suspect]

REACTIONS (4)
  - BALANCE DISORDER [None]
  - CHEST PAIN [None]
  - DIZZINESS [None]
  - OTOTOXICITY [None]
